FAERS Safety Report 7732425-0 (Version None)
Quarter: 2011Q3

REPORT INFORMATION
  Report Type: 
  Country: None (occurrence: None)
  Receive Date: 20110906
  Receipt Date: 20110902
  Transmission Date: 20111222
  Serious: Yes (Disabling)
  Sender: FDA-Public Use
  Company Number: JP-PFIZER INC-2011184040

PATIENT
  Age: 39 Year
  Sex: Male
  Weight: 66 kg

DRUGS (7)
  1. DEPAS [Concomitant]
     Dosage: 1.5 MG, 3X/DAY
     Route: 048
     Dates: start: 20110812
  2. LYRICA [Suspect]
     Dosage: 150 MG, 3X/DAY
     Route: 048
     Dates: start: 20110304, end: 20110811
  3. LYRICA [Suspect]
     Indication: NEURALGIA
     Dosage: 150 MG, 1X/DAY
     Route: 048
     Dates: start: 20101029, end: 20110116
  4. OLOPATADINE HCL [Concomitant]
     Dosage: 5 MG, 2X/DAY
     Route: 048
     Dates: start: 20040401, end: 20110501
  5. DEPAS [Concomitant]
     Indication: CERVICOBRACHIAL SYNDROME
     Dosage: 1 MG, 2X/DAY
     Route: 048
     Dates: start: 20040401, end: 20110811
  6. ALLEGRA [Concomitant]
     Indication: RHINITIS ALLERGIC
     Dosage: 30 MG, 2X/DAY
     Route: 048
     Dates: start: 20110501
  7. LYRICA [Suspect]
     Dosage: 150 MG, 2X/DAY
     Route: 048
     Dates: start: 20110117, end: 20110303

REACTIONS (4)
  - GENERALISED OEDEMA [None]
  - PLEURAL EFFUSION [None]
  - WEIGHT INCREASED [None]
  - NEURALGIA [None]
